FAERS Safety Report 25263553 (Version 2)
Quarter: 2025Q2

REPORT INFORMATION
  Report Type: Report from Study
  Country: US (occurrence: US)
  Receive Date: 20250502
  Receipt Date: 20250502
  Transmission Date: 20250717
  Serious: Yes (Death)
  Sender: EISAI
  Company Number: US-Eisai-EC-2025-188575

PATIENT
  Age: 78 Year
  Sex: Male
  Weight: 73.48 kg

DRUGS (24)
  1. LENVIMA [Suspect]
     Active Substance: LENVATINIB
     Indication: Renal cancer
     Dosage: THERAPY HELD FOR 5 DAYS
     Dates: start: 20250101, end: 2025
  2. LENVIMA [Suspect]
     Active Substance: LENVATINIB
     Dosage: TOLD BY THE RADIATION DOCTOR TO STOP TAKING LENVIMA FOR 5 DAYS
     Dates: start: 2025, end: 202502
  3. LENVIMA [Suspect]
     Active Substance: LENVATINIB
     Dates: start: 2025, end: 20250429
  4. KEYTRUDA [Suspect]
     Active Substance: PEMBROLIZUMAB
     Indication: Renal cancer
  5. AMLODIPINE [Concomitant]
     Active Substance: AMLODIPINE BESYLATE
  6. PEPTO-BISMOL [Concomitant]
     Active Substance: BISMUTH SUBSALICYLATE
  7. CANNABIS SATIVA SUBSP. INDICA TOP [Concomitant]
     Active Substance: CANNABIS SATIVA SUBSP. INDICA TOP
  8. PERCOCET [Concomitant]
     Active Substance: ACETAMINOPHEN\OXYCODONE HYDROCHLORIDE
     Indication: Pain
  9. MIRALAX [Concomitant]
     Active Substance: POLYETHYLENE GLYCOL 3350
  10. ONDANSETRON HYDROCHLORIDE [Concomitant]
     Active Substance: ONDANSETRON HYDROCHLORIDE
  11. COLACE [Concomitant]
     Active Substance: DOCUSATE SODIUM
  12. MINERALS\VITAMINS [Concomitant]
     Active Substance: MINERALS\VITAMINS
  13. FLOMAX [Concomitant]
     Active Substance: TAMSULOSIN HYDROCHLORIDE
  14. PROCHLORPERAZINE MALEATE [Concomitant]
     Active Substance: PROCHLORPERAZINE MALEATE
     Indication: Nausea
  15. PRESERVISON AREDS [Concomitant]
  16. FERROUS SULFATE [Concomitant]
     Active Substance: FERROUS SULFATE
  17. ERYTHROPOIETIN [Concomitant]
     Active Substance: ERYTHROPOIETIN
  18. OMEPRAZOLE [Concomitant]
     Active Substance: OMEPRAZOLE
  19. ZOFRAN [Concomitant]
     Active Substance: ONDANSETRON HYDROCHLORIDE
     Indication: Nausea
  20. OXYCODONE [Concomitant]
     Active Substance: OXYCODONE
  21. DEXAMETHASONE [Concomitant]
     Active Substance: DEXAMETHASONE
  22. OLANZAPINE [Concomitant]
     Active Substance: OLANZAPINE
     Indication: Nausea
  23. IRON SUPPLEMEMT [Concomitant]
  24. ERYTHROPOIETIN [Concomitant]
     Active Substance: ERYTHROPOIETIN

REACTIONS (6)
  - Drug ineffective [Fatal]
  - Bone pain [Unknown]
  - Pain [Unknown]
  - Pyrexia [Recovered/Resolved]
  - Peripheral swelling [Not Recovered/Not Resolved]
  - Blood pressure fluctuation [Not Recovered/Not Resolved]

NARRATIVE: CASE EVENT DATE: 20250101
